FAERS Safety Report 21803550 (Version 2)
Quarter: 2023Q4

REPORT INFORMATION
  Report Type: Report from Study
  Country: US (occurrence: US)
  Receive Date: 20230101
  Receipt Date: 20231006
  Transmission Date: 20240109
  Serious: No
  Sender: FDA-Public Use
  Company Number: US-ABBVIE-22K-163-4422474-00

PATIENT
  Sex: Female

DRUGS (1)
  1. HUMIRA [Suspect]
     Active Substance: ADALIMUMAB
     Indication: Psoriasis
     Dosage: FORM STRENGTH- 40 MILLIGRAM
     Route: 058

REACTIONS (4)
  - Onycholysis [Unknown]
  - COVID-19 [Unknown]
  - Unevaluable event [Unknown]
  - Alopecia [Unknown]
